FAERS Safety Report 8904811 (Version 2)
Quarter: 2013Q1

REPORT INFORMATION
  Report Type: Spontaneous
  Country: US (occurrence: US)
  Receive Date: 20121112
  Receipt Date: 20130110
  Transmission Date: 20140127
  Serious: Yes (Other)
  Sender: FDA-Public Use
  Company Number: US-PFIZER INC-2012279659

PATIENT
  Age: 40 Year
  Sex: Male

DRUGS (1)
  1. MORPHINE SULFATE [Suspect]
     Indication: PAIN
     Dosage: UNK
     Route: 037
     Dates: start: 1995, end: 2007

REACTIONS (1)
  - Hypothalamo-pituitary disorder [Not Recovered/Not Resolved]
